FAERS Safety Report 15048413 (Version 2)
Quarter: 2018Q3

REPORT INFORMATION
  Report Type: Spontaneous
  Country: AT (occurrence: AT)
  Receive Date: 20180622
  Receipt Date: 20180818
  Transmission Date: 20181010
  Serious: Yes (Life-Threatening)
  Sender: FDA-Public Use
  Company Number: AT-ROCHE-2142941

PATIENT
  Age: 60 Year
  Sex: Female

DRUGS (10)
  1. ROACTEMRA [Suspect]
     Active Substance: TOCILIZUMAB
     Indication: AORTITIS
     Route: 058
     Dates: start: 20180416, end: 20180416
  2. PREDNISOLON [Concomitant]
     Active Substance: PREDNISOLONE
     Route: 065
     Dates: start: 201803
  3. ACETAN [Concomitant]
  4. EUTHYROX [Concomitant]
     Active Substance: LEVOTHYROXINE SODIUM
  5. EBETREXAT [Concomitant]
     Active Substance: METHOTREXATE SODIUM
     Route: 065
     Dates: start: 201708, end: 20180423
  6. OLEOVIT [Concomitant]
     Dosage: WEEKLY
     Route: 065
  7. CALCIDURAN [Concomitant]
     Dosage: DAILY
     Route: 065
  8. BONVIVA [Concomitant]
     Active Substance: IBANDRONATE SODIUM
  9. CONCOR [Concomitant]
     Active Substance: BISOPROLOL FUMARATE
     Dosage: DAILY
     Route: 065
  10. DUROTIV [Concomitant]
     Active Substance: ESOMEPRAZOLE

REACTIONS (3)
  - Aortic dissection [Recovering/Resolving]
  - Intentional product use issue [Unknown]
  - Off label use [Unknown]

NARRATIVE: CASE EVENT DATE: 20180423
